FAERS Safety Report 4456845-5 (Version None)
Quarter: 2004Q3

REPORT INFORMATION
  Report Type: 
  Country: None (occurrence: None)
  Receive Date: 20040921
  Receipt Date: 20040913
  Transmission Date: 20050211
  Serious: Yes (Hospitalization)
  Sender: FDA-Public Use
  Company Number: K200400778

PATIENT
  Age: 29 Year
  Sex: Female
  Weight: 48 kg

DRUGS (1)
  1. NORDETTE-21 [Suspect]
     Indication: MENSTRUATION IRREGULAR
     Dosage: 30 MG, ORAL
     Route: 048
     Dates: start: 20001106, end: 20001109

REACTIONS (14)
  - ABDOMINAL PAIN UPPER [None]
  - ANOREXIA [None]
  - ASTHENIA [None]
  - DIZZINESS [None]
  - DRUG WITHDRAWAL SYNDROME [None]
  - FEELING DRUNK [None]
  - HEADACHE [None]
  - HYPOAESTHESIA [None]
  - MIGRAINE [None]
  - MUSCLE CRAMP [None]
  - NERVE INJURY [None]
  - PAIN IN EXTREMITY [None]
  - PYREXIA [None]
  - TRANSIENT ISCHAEMIC ATTACK [None]
